FAERS Safety Report 4956407-7 (Version None)
Quarter: 2006Q1

REPORT INFORMATION
  Report Type: 
  Country: None (occurrence: None)
  Receive Date: 20060328
  Receipt Date: 20060328
  Transmission Date: 20060701
  Serious: Yes (Life-Threatening, Hospitalization)
  Sender: FDA-Public Use
  Company Number: None

PATIENT
  Age: 63 Year
  Sex: Female
  Weight: 57.1532 kg

DRUGS (2)
  1. ZAND CLEANSING FIBER ZAND ZAND QUICK CLEANSE KIT [Suspect]
     Indication: ABDOMINAL DISTENSION
     Dosage: 3 CAPSULES AM AND PM PO
     Route: 048
     Dates: start: 20060227, end: 20060228
  2. THISTLE CLEASNER AND A CLEANS LAX ZAND ZAND QUICK CLEANSE KIT [Suspect]
     Dosage: 1 AFTER CAPS1 AT BEDTIME PO
     Route: 048
     Dates: start: 20060227, end: 20060228

REACTIONS (2)
  - ARTERIAL OCCLUSIVE DISEASE [None]
  - MYOCARDIAL INFARCTION [None]
